FAERS Safety Report 22298264 (Version 2)
Quarter: 2023Q2

REPORT INFORMATION
  Report Type: Spontaneous
  Country: BR (occurrence: BR)
  Receive Date: 20230509
  Receipt Date: 20230607
  Transmission Date: 20230721
  Serious: Yes (Other)
  Sender: FDA-Public Use
  Company Number: BR-GLAXOSMITHKLINE-BR2023AMR065296

PATIENT

DRUGS (1)
  1. FLUTICASONE FUROATE\VILANTEROL TRIFENATATE [Suspect]
     Active Substance: FLUTICASONE FUROATE\VILANTEROL TRIFENATATE
     Indication: Asthmatic crisis
     Dosage: 1 DF, QD(AT NIGHT)

REACTIONS (3)
  - Near death experience [Recovered/Resolved]
  - Dyspnoea [Recovered/Resolved]
  - Product complaint [Unknown]
